FAERS Safety Report 23814014 (Version 1)
Quarter: 2024Q2

REPORT INFORMATION
  Report Type: Spontaneous
  Country: US (occurrence: US)
  Receive Date: 20240503
  Receipt Date: 20240503
  Transmission Date: 20240716
  Serious: No
  Sender: FDA-Public Use
  Company Number: US-GALDERMA-US2024001871

PATIENT

DRUGS (4)
  1. PROACTIV MD ADAPALENE ACNE TREATMENT [Suspect]
     Active Substance: ADAPALENE
     Indication: Acne
     Dosage: 1 DOSAGE FORM, QD, PEA SIZE
     Route: 061
     Dates: start: 2019
  2. Proactiv MD Ultra Gentle Cleanser [Concomitant]
     Indication: Acne
     Dosage: 1 DOSAGE FORM, USED 2 OR MORE TIMES A DAY, DIME SIZE
     Route: 061
     Dates: start: 2019
  3. Proactiv MD Ultra Hydrating Moisturizer [Concomitant]
     Indication: Acne
     Dosage: 1 DOSAGE FORM, USED 2 OR MORE TIMES A DAY, DIME SIZE
     Route: 061
     Dates: start: 2019
  4. BIOTIN [Concomitant]
     Active Substance: BIOTIN
     Indication: Product used for unknown indication

REACTIONS (2)
  - Skin exfoliation [Recovering/Resolving]
  - Dry skin [Recovering/Resolving]

NARRATIVE: CASE EVENT DATE: 20210101
